FAERS Safety Report 9717184 (Version 4)
Quarter: 2014Q3

REPORT INFORMATION
  Report Type: Spontaneous
  Country: US (occurrence: None)
  Receive Date: 20131125
  Receipt Date: 20140818
  Transmission Date: 20150326
  Serious: Yes (Other)
  Sender: FDA-Public Use
  Company Number: 2013-US-002730

PATIENT
  Age: 58 Year
  Sex: Female
  Weight: 72.6 kg

DRUGS (9)
  1. XYREM [Suspect]
     Active Substance: SODIUM OXYBATE
     Indication: NARCOLEPSY
     Dosage: 2.25G, QD, FIRST DOSE ORAL
     Route: 048
     Dates: start: 20131009
  2. LEVOTHYROXINE (LEVOTHYROXINE) [Concomitant]
     Active Substance: LEVOTHYROXINE
  3. LAMICTAL [Suspect]
     Active Substance: LAMOTRIGINE
     Indication: PRODUCT USED FOR UNKNOWN INDICATION
     Dosage: FIRST DOSE
     Route: 048
     Dates: start: 20131009
  4. CATAFLAM (DICLOFENAC POTASSIUM) [Concomitant]
  5. KEPPRA [Suspect]
     Active Substance: LEVETIRACETAM
     Indication: CONVULSION
     Dosage: UNK
  6. ONFI [Suspect]
     Active Substance: CLOBAZAM
     Indication: PRODUCT USED FOR UNKNOWN INDICATION
  7. EFFEXOR (VENLAFAXINE HYDROCHLORIDE) [Concomitant]
  8. XYREM [Suspect]
     Active Substance: SODIUM OXYBATE
     Indication: CATAPLEXY
     Dosage: 2.25G, QD, FIRST DOSE ORAL
     Route: 048
     Dates: start: 20131009
  9. ZOLOFT [Concomitant]
     Active Substance: SERTRALINE HYDROCHLORIDE

REACTIONS (17)
  - Suicidal ideation [None]
  - Drug ineffective [None]
  - Cataplexy [None]
  - Depression [None]
  - Hypoaesthesia oral [None]
  - Paraesthesia oral [None]
  - Convulsion [None]
  - Disorientation [None]
  - Hypoaesthesia [None]
  - Underdose [None]
  - Condition aggravated [None]
  - Weight increased [None]
  - Tremor [None]
  - Intentional product misuse [None]
  - Therapeutic response changed [None]
  - Dysphemia [None]
  - Rash [None]

NARRATIVE: CASE EVENT DATE: 201310
